FAERS Safety Report 14249421 (Version 1)
Quarter: 2017Q4

REPORT INFORMATION
  Report Type: Spontaneous
  Country: JP (occurrence: JP)
  Receive Date: 20171204
  Receipt Date: 20171204
  Transmission Date: 20180321
  Serious: Yes (Other)
  Sender: FDA-Public Use
  Company Number: JP-AMGEN-JPNCT2017180814

PATIENT

DRUGS (1)
  1. PANITUMUMAB [Suspect]
     Active Substance: PANITUMUMAB
     Indication: COLORECTAL CANCER
     Dosage: 6 MG/M2, UNK
     Route: 042

REACTIONS (5)
  - Drug interaction [Unknown]
  - Decreased appetite [Unknown]
  - Rash [Unknown]
  - Anaemia [Unknown]
  - Diarrhoea [Unknown]
